FAERS Safety Report 19169016 (Version 1)
Quarter: 2021Q2

REPORT INFORMATION
  Report Type: Spontaneous
  Country: CH (occurrence: CH)
  Receive Date: 20210422
  Receipt Date: 20210422
  Transmission Date: 20210717
  Serious: Yes (Hospitalization, Other)
  Sender: FDA-Public Use
  Company Number: CH-SA-2021SA131891

PATIENT
  Age: 88 Year
  Sex: Female

DRUGS (12)
  1. COLOSAN [Concomitant]
     Dates: end: 20210313
  2. APROVEL [Suspect]
     Active Substance: IRBESARTAN
     Dosage: 150 MG, QD
     Route: 048
  3. MAG 2 [MAGNESIUM CARBONATE] [Concomitant]
     Active Substance: MAGNESIUM CARBONATE
     Dates: end: 20210313
  4. COAPROVEL [Suspect]
     Active Substance: HYDROCHLOROTHIAZIDE\IRBESARTAN
     Route: 048
     Dates: end: 20210313
  5. BELOC ZOK [Concomitant]
     Active Substance: METOPROLOL SUCCINATE
     Dosage: 200 MG
  6. DAFALGAN [Concomitant]
     Active Substance: ACETAMINOPHEN
  7. ZOLPIDEM [Concomitant]
     Active Substance: ZOLPIDEM TARTRATE
  8. ASSAN?THERMO [Concomitant]
     Dates: end: 20210313
  9. CALCIMAGON D3 [Concomitant]
     Active Substance: CALCIUM\CHOLECALCIFEROL
  10. EUTHYROX [Concomitant]
     Active Substance: LEVOTHYROXINE SODIUM
     Dosage: 0.1 MG
  11. CONDROSULF [Concomitant]
     Active Substance: SODIUM CHONDROITIN SULFATE
     Dosage: 400 MG
     Dates: end: 20210313
  12. AGOPTON [Concomitant]
     Active Substance: LANSOPRAZOLE
     Dosage: 30 MG
     Dates: end: 20210313

REACTIONS (1)
  - Inappropriate antidiuretic hormone secretion [Not Recovered/Not Resolved]

NARRATIVE: CASE EVENT DATE: 20210313
